FAERS Safety Report 12996309 (Version 1)
Quarter: 2016Q4

REPORT INFORMATION
  Report Type: Spontaneous
  Country: AR (occurrence: AR)
  Receive Date: 20161203
  Receipt Date: 20161203
  Transmission Date: 20170207
  Serious: Yes (Other)
  Sender: FDA-Public Use
  Company Number: AR-STRIDES ARCOLAB LIMITED-2016SP018409

PATIENT

DRUGS (1)
  1. TACROLIMUS. [Suspect]
     Active Substance: TACROLIMUS
     Indication: RENAL TRANSPLANT
     Dosage: UNK

REACTIONS (4)
  - Hyperparathyroidism [Recovered/Resolved]
  - Pain in extremity [Recovered/Resolved]
  - Post transplant distal limb syndrome [Recovered/Resolved]
  - Toxicity to various agents [Recovered/Resolved]
